FAERS Safety Report 5167601-7 (Version None)
Quarter: 2006Q4

REPORT INFORMATION
  Report Type: 
  Country: None (occurrence: None)
  Receive Date: 20060919
  Receipt Date: 20060731
  Transmission Date: 20070319
  Serious: No
  Sender: FDA-Public Use
  Company Number: BDI-008482

PATIENT
  Age: 56 Year
  Sex: Male
  Weight: 102.27 kg

DRUGS (2)
  1. MULTIHANCE [Suspect]
     Indication: HEMIPARESIS
     Dosage: 20 ML ONCE IV
     Route: 042
     Dates: start: 20060729, end: 20060729
  2. MULTIHANCE [Suspect]
     Indication: NUCLEAR MAGNETIC RESONANCE IMAGING BRAIN
     Dosage: 20 ML ONCE IV
     Route: 042
     Dates: start: 20060729, end: 20060729

REACTIONS (1)
  - HYPERSENSITIVITY [None]
